FAERS Safety Report 4377744-3 (Version None)
Quarter: 2004Q2

REPORT INFORMATION
  Report Type: 
  Country: None (occurrence: None)
  Receive Date: 20040615
  Receipt Date: 20040604
  Transmission Date: 20050107
  Serious: Yes (Hospitalization)
  Sender: FDA-Public Use
  Company Number: ES-ROCHE-369976

PATIENT
  Age: 43 Year
  Sex: Male

DRUGS (5)
  1. PEG-INTERFERON ALFA 2A (RO 25-8310) [Suspect]
     Route: 058
     Dates: start: 20021010
  2. RIBAVIRIN [Suspect]
     Route: 048
     Dates: start: 20021010
  3. TENOFOVIR [Concomitant]
     Route: 048
  4. DIDANOSINA [Concomitant]
     Route: 048
  5. NEVIRAPINA [Concomitant]
     Route: 048

REACTIONS (1)
  - HEPATIC ENCEPHALOPATHY [None]
